FAERS Safety Report 7802594-2 (Version None)
Quarter: 2011Q4

REPORT INFORMATION
  Report Type: 
  Country: None (occurrence: None)
  Receive Date: 20111007
  Receipt Date: 20110927
  Transmission Date: 20120403
  Serious: Yes (Hospitalization)
  Sender: FDA-Public Use
  Company Number: US-BAYER-2011-060945

PATIENT
  Age: 17 Year
  Sex: Female
  Weight: 61.224 kg

DRUGS (3)
  1. YAZ [Suspect]
     Indication: CONTRACEPTION
     Dosage: UNK
     Route: 048
     Dates: start: 20090901, end: 20100801
  2. YAZ [Suspect]
     Indication: DYSMENORRHOEA
  3. LEXAPRO [Concomitant]

REACTIONS (4)
  - CHEST PAIN [None]
  - PULMONARY EMBOLISM [None]
  - INJURY [None]
  - DYSPNOEA [None]
